FAERS Safety Report 25169646 (Version 2)
Quarter: 2025Q2

REPORT INFORMATION
  Report Type: Spontaneous
  Country: US (occurrence: US)
  Receive Date: 20250407
  Receipt Date: 20250408
  Transmission Date: 20250716
  Serious: Yes (Life-Threatening, Hospitalization)
  Sender: BAUSCH AND LOMB
  Company Number: US-BAUSCH-BL-2025-004526

PATIENT
  Age: 27 Year
  Sex: Female

DRUGS (1)
  1. BUPROPION [Suspect]
     Active Substance: BUPROPION
     Indication: Product used for unknown indication
     Route: 048

REACTIONS (4)
  - Toxicity to various agents [Recovering/Resolving]
  - Cardiogenic shock [Recovering/Resolving]
  - Pulmonary oedema [Recovering/Resolving]
  - Intentional overdose [Unknown]
